FAERS Safety Report 20588807 (Version 1)
Quarter: 2022Q1

REPORT INFORMATION
  Report Type: Spontaneous
  Country: US (occurrence: None)
  Receive Date: 20220311
  Receipt Date: 20220311
  Transmission Date: 20220423
  Serious: Yes (Hospitalization)
  Sender: FDA-Public Use
  Company Number: None

PATIENT
  Sex: Female
  Weight: 111.58 kg

DRUGS (18)
  1. IBRANCE [Suspect]
     Active Substance: PALBOCICLIB
     Indication: Breast cancer female
     Dosage: FREQUENCY : DAILY;?
     Route: 048
  2. ASPIRIN [Concomitant]
  3. CALCIUM CARBONATE WITH VIT D [Concomitant]
  4. VITAMIN D3 [Concomitant]
  5. VITAMIN B12 [Concomitant]
  6. LODINE [Concomitant]
  7. FOLIC ACID [Concomitant]
  8. GLIPIZIDE [Concomitant]
  9. AVAPRO [Concomitant]
     Active Substance: IRBESARTAN
  10. SYNTHROID [Concomitant]
  11. METFORMIN [Concomitant]
  12. METHOTRAXATE [Concomitant]
  13. METOPROLOL [Concomitant]
  14. VITAMINS [Concomitant]
     Active Substance: VITAMINS
  15. ACTOS [Concomitant]
  16. ZOCOR [Concomitant]
  17. AZULFIDINE [Concomitant]
  18. EXEMESTANE [Concomitant]

REACTIONS (5)
  - Hypercalcaemia [None]
  - Hypokalaemia [None]
  - Blood creatinine increased [None]
  - Fatigue [None]
  - Asthenia [None]
